FAERS Safety Report 10777238 (Version 1)
Quarter: 2015Q1

REPORT INFORMATION
  Report Type: Other
  Country: US (occurrence: US)
  Receive Date: 20150209
  Receipt Date: 20150209
  Transmission Date: 20150721
  Serious: Yes (Death)
  Sender: FDA-Public Use
  Company Number: US-FRI-1000074334

PATIENT
  Age: 55 Year
  Sex: Female

DRUGS (8)
  1. CITALOPRAM [Suspect]
     Active Substance: CITALOPRAM HYDROBROMIDE
  2. CYCLOBENZAPRINE [Suspect]
     Active Substance: CYCLOBENZAPRINE
  3. TRAZODONE [Suspect]
     Active Substance: TRAZODONE HYDROCHLORIDE
  4. ETHANOL [Suspect]
     Active Substance: ALCOHOL
  5. OXYCODONE [Suspect]
     Active Substance: OXYCODONE
  6. QUETIAPINE [Suspect]
     Active Substance: QUETIAPINE
  7. METHYLPHENIDATE [Suspect]
     Active Substance: METHYLPHENIDATE
  8. ORPHENADRINE [Suspect]
     Active Substance: ORPHENADRINE

REACTIONS (1)
  - Drug abuse [Fatal]
